FAERS Safety Report 5538451-4 (Version None)
Quarter: 2007Q4

REPORT INFORMATION
  Report Type: 
  Country: None (occurrence: None)
  Receive Date: 20071205
  Receipt Date: 20071120
  Transmission Date: 20080405
  Serious: Yes (Death)
  Sender: FDA-Public Use
  Company Number: 2007BI021874

PATIENT
  Age: 69 Year
  Sex: Female

DRUGS (8)
  1. AVONEX [Suspect]
     Indication: RELAPSING-REMITTING MULTIPLE SCLEROSIS
     Dosage: 30 UG;QW;IM
     Route: 030
     Dates: start: 20070607, end: 20070705
  2. PREDNISOLONE [Concomitant]
  3. IMURAN [Concomitant]
  4. OMEPRAL [Concomitant]
  5. GLYSENNID [Concomitant]
  6. FOSAMAC [Concomitant]
  7. SELBEX [Concomitant]
  8. NOVOLIN 50/50 [Concomitant]

REACTIONS (3)
  - CENTRAL NERVOUS SYSTEM LYMPHOMA [None]
  - COMA [None]
  - GAMMA-GLUTAMYLTRANSFERASE INCREASED [None]
